FAERS Safety Report 9602028 (Version 2)
Quarter: 2013Q4

REPORT INFORMATION
  Report Type: Report from Study
  Country: US (occurrence: US)
  Receive Date: 20131007
  Receipt Date: 20131028
  Transmission Date: 20140711
  Serious: No
  Sender: FDA-Public Use
  Company Number: US-BAYER-2013-117567

PATIENT
  Age: 75 Year
  Sex: Male

DRUGS (1)
  1. XOFIGO [Suspect]
     Indication: PROSTATE CANCER
     Dosage: ONE INJECTION EVERY 4 WEEKS
     Route: 042
     Dates: start: 2013

REACTIONS (2)
  - Muscle spasms [Not Recovered/Not Resolved]
  - Pain [Not Recovered/Not Resolved]
